FAERS Safety Report 6335878-8 (Version None)
Quarter: 2009Q3

REPORT INFORMATION
  Report Type: 
  Country: None (occurrence: None)
  Receive Date: 20090828
  Receipt Date: 20090813
  Transmission Date: 20100115
  Serious: Yes (Hospitalization)
  Sender: FDA-Public Use
  Company Number: 090820-0000928

PATIENT
  Age: 63 Year
  Sex: Male

DRUGS (6)
  1. ASPARAGINASE (ASPARAGINASE) [Suspect]
     Indication: ACUTE LYMPHOCYTIC LEUKAEMIA
     Dosage: 20900 IU; 1X; IV
     Route: 042
     Dates: start: 20090703, end: 20090703
  2. SPRYCEL [Suspect]
     Indication: ACUTE LYMPHOCYTIC LEUKAEMIA
     Dosage: 100 MG; QD; PO
     Route: 048
     Dates: start: 20090714
  3. METHOTREXATE [Suspect]
     Indication: ACUTE LYMPHOCYTIC LEUKAEMIA
     Dosage: 2080 MG; QD; IV
     Route: 042
     Dates: start: 20090702, end: 20090702
  4. ARIXTRA [Concomitant]
  5. LYRICA [Concomitant]
  6. CHIBROCADRON [Concomitant]

REACTIONS (8)
  - ASTHENIA [None]
  - COUGH [None]
  - DECREASED APPETITE [None]
  - FEBRILE BONE MARROW APLASIA [None]
  - HAEMOGLOBIN DECREASED [None]
  - HAEMORRHAGE [None]
  - ORAL FUNGAL INFECTION [None]
  - WEIGHT DECREASED [None]
